FAERS Safety Report 17847093 (Version 1)
Quarter: 2020Q2

REPORT INFORMATION
  Report Type: Spontaneous
  Country: CN (occurrence: CN)
  Receive Date: 20200601
  Receipt Date: 20200601
  Transmission Date: 20200714
  Serious: Yes (Hospitalization)
  Sender: FDA-Public Use
  Company Number: CN-BAXTER-2020BAX010986

PATIENT
  Age: 68 Year
  Sex: Male
  Weight: 62 kg

DRUGS (10)
  1. ENDOXAN [Suspect]
     Active Substance: CYCLOPHOSPHAMIDE
     Indication: NON-HODGKIN^S LYMPHOMA
     Dosage: ENDOXAN + 0.9% SODIUM CHLORIDE
     Route: 041
     Dates: start: 20200427, end: 20200427
  2. 0.9% SODIUM CHLORIDE INJECTION [Suspect]
     Active Substance: SODIUM CHLORIDE
     Indication: MEDICATION DILUTION
     Dosage: ENDOXAN + 0.9% SODIUM CHLORIDE
     Route: 041
     Dates: start: 20200427, end: 20200427
  3. 0.9% SODIUM CHLORIDE INJECTION [Suspect]
     Active Substance: SODIUM CHLORIDE
     Dosage: MABTHERA 600 MG+ 0.9% SODIUM CHLORIDE 200 ML, 50ML/HOUR
     Route: 042
     Dates: start: 20200428, end: 20200428
  4. DOXORUBICIN HYDROCHLORIDE LIPOSOME [Suspect]
     Active Substance: DOXORUBICIN HYDROCHLORIDE
     Indication: NON-HODGKIN^S LYMPHOMA
     Dosage: DOXORUBICIN + 5% GLUCOSE, FIRST 15 MIN AT SPEED OF 7.5ML/H, 2ND 15 MINS AT 15ML/H, AND LATER 50ML/H
     Route: 042
     Dates: start: 20200427, end: 20200427
  5. 0.9% SODIUM CHLORIDE INJECTION [Suspect]
     Active Substance: SODIUM CHLORIDE
     Dosage: MABTHERA 100 MG+ 0.9% NS 100 ML, 1ST 15 MINS SPEED 7.5ML/H, 2ND15 MINS AT 15ML/H, 2ND 50 ML/H LATER
     Route: 042
     Dates: start: 20200428, end: 20200428
  6. 5% GLUCOSE  INJECTION [Suspect]
     Active Substance: DEXTROSE
     Indication: MEDICATION DILUTION
     Dosage: DOXORUBICIN + 5% GLUCOSE, FIRST 15 MIN AT SPEED OF 7.5ML/H, 2ND 15 MINS AT 15ML/H, AND LATER 50ML/H
     Route: 042
     Dates: start: 20200427, end: 20200427
  7. XIAIKE [Suspect]
     Active Substance: VINDESINE
     Indication: NON-HODGKIN^S LYMPHOMA
     Dosage: XIAIKE + 0.9% SODIUM CHLORIDE
     Route: 040
     Dates: start: 20200427, end: 20200427
  8. 0.9% SODIUM CHLORIDE INJECTION [Suspect]
     Active Substance: SODIUM CHLORIDE
     Dosage: XIAIKE + 0.9% SODIUM CHLORIDE
     Route: 040
     Dates: start: 20200427, end: 20200427
  9. MABTHERA [Suspect]
     Active Substance: RITUXIMAB
     Dosage: MABTHERA 600 MG+ 0.9% SODIUM CHLORIDE 200 ML, 50ML/HOUR
     Route: 042
     Dates: start: 20200428, end: 20200428
  10. MABTHERA [Suspect]
     Active Substance: RITUXIMAB
     Indication: NON-HODGKIN^S LYMPHOMA
     Dosage: MABTHERA 100 MG+ 0.9% NS 100 ML, 1ST 15 MINS SPEED 7.5ML/H, 2ND15 MINS AT 15ML/H, 2ND 50 ML/H LATER
     Route: 042
     Dates: start: 20200428, end: 20200428

REACTIONS (1)
  - Bone marrow failure [Recovering/Resolving]

NARRATIVE: CASE EVENT DATE: 20200509
